FAERS Safety Report 22948017 (Version 5)
Quarter: 2023Q4

REPORT INFORMATION
  Report Type: Report from Study
  Country: BR (occurrence: BR)
  Receive Date: 20230915
  Receipt Date: 20231128
  Transmission Date: 20240110
  Serious: Yes (Other)
  Sender: FDA-Public Use
  Company Number: BR-002147023-NVSC2023BR197902

PATIENT
  Sex: Female

DRUGS (2)
  1. KISQALI [Suspect]
     Active Substance: RIBOCICLIB
     Indication: Breast cancer female
     Dosage: UNK, CYCLIC
     Route: 065
  2. KISQALI [Suspect]
     Active Substance: RIBOCICLIB
     Dosage: UNK
     Route: 065

REACTIONS (8)
  - Immunodeficiency [Recovered/Resolved]
  - Immunodeficiency [Unknown]
  - Immunodeficiency [Recovered/Resolved]
  - Cardiac disorder [Unknown]
  - Pruritus [Not Recovered/Not Resolved]
  - Influenza [Recovered/Resolved]
  - Headache [Unknown]
  - Rhinitis [Unknown]

NARRATIVE: CASE EVENT DATE: 20230101
